FAERS Safety Report 9603359 (Version 1)
Quarter: 2013Q4

REPORT INFORMATION
  Report Type: Spontaneous
  Country: ZA (occurrence: ZA)
  Receive Date: 20131007
  Receipt Date: 20131007
  Transmission Date: 20140711
  Serious: Yes (Other)
  Sender: FDA-Public Use
  Company Number: ZA-009507513-1310ZAF001095

PATIENT
  Age: 40 Year
  Sex: Male

DRUGS (1)
  1. CELESTONE SOLUSPAN [Suspect]

REACTIONS (1)
  - Osteonecrosis [Unknown]
